FAERS Safety Report 11501915 (Version 1)
Quarter: 2015Q3

REPORT INFORMATION
  Report Type: Other
  Country: AT (occurrence: AT)
  Receive Date: 20150914
  Receipt Date: 20150914
  Transmission Date: 20151125
  Serious: Yes (Other)
  Sender: FDA-Public Use
  Company Number: AT-COR_00391_2015

PATIENT

DRUGS (14)
  1. METHOTREXATE [Suspect]
     Active Substance: METHOTREXATE
     Indication: ATYPICAL TERATOID/RHABDOID TUMOUR OF CNS
     Dosage: THREE 9-WEEK COURSES, 5 G/M2/24 H
  2. ETOPOSIDE. [Suspect]
     Active Substance: ETOPOSIDE
     Dosage: THREE 9-WEEK COURSES
     Route: 037
  3. IFOSFAMIDE. [Suspect]
     Active Substance: IFOSFAMIDE
     Indication: ATYPICAL TERATOID/RHABDOID TUMOUR OF CNS
     Dosage: THREE 9-WEEK COURSES, 1.5 G/M2/24 H
  4. DEPOCYTE [Suspect]
     Active Substance: CYTARABINE
     Indication: ATYPICAL TERATOID/RHABDOID TUMOUR OF CNS
     Dosage: THREE 9-WEEK COURSES
     Route: 037
  5. ETOPOSIDE. [Suspect]
     Active Substance: ETOPOSIDE
     Dosage: HIGH-DOSE
     Route: 037
  6. CYCLOPHOSPHAMIDE. [Suspect]
     Active Substance: CYCLOPHOSPHAMIDE
     Indication: ATYPICAL TERATOID/RHABDOID TUMOUR OF CNS
     Dosage: THREE 9-WEEK COURSES
  7. VINCRISTINE [Suspect]
     Active Substance: VINCRISTINE
     Indication: ATYPICAL TERATOID/RHABDOID TUMOUR OF CNS
     Dosage: THREE 9-WEEK COURSES, 1.5 MG/M2/BOLUS
  8. CISPLATIN. [Suspect]
     Active Substance: CISPLATIN
     Indication: ATYPICAL TERATOID/RHABDOID TUMOUR OF CNS
     Dosage: THREE 9-WEEK COURSES
  9. CARBOPLATIN. [Suspect]
     Active Substance: CARBOPLATIN
     Indication: ATYPICAL TERATOID/RHABDOID TUMOUR OF CNS
     Dosage: FROM DAY 6 TO DAY 4, 500 MG/M2/D
  10. THIOTEPA. [Suspect]
     Active Substance: THIOTEPA
     Indication: ATYPICAL TERATOID/RHABDOID TUMOUR OF CNS
     Dosage: FROM DAY 6 TO DAY 4, 300 MG/M2/D
  11. DOXORUBICIN [Suspect]
     Active Substance: DOXORUBICIN
     Indication: ATYPICAL TERATOID/RHABDOID TUMOUR OF CNS
     Dosage: THREE 9-WEEK COURSES
  12. ETOPOSIDE. [Suspect]
     Active Substance: ETOPOSIDE
     Dosage: THREE 9-WEEK COURSES
  13. ETOPOSIDE. [Suspect]
     Active Substance: ETOPOSIDE
     Indication: ATYPICAL TERATOID/RHABDOID TUMOUR OF CNS
     Dosage: HIGH-DOSE
  14. RADIOTHERAPY [Suspect]
     Active Substance: RADIATION THERAPY
     Indication: ATYPICAL TERATOID/RHABDOID TUMOUR OF CNS
     Dosage: DF

REACTIONS (1)
  - Deafness [Unknown]
